FAERS Safety Report 4692137-7 (Version None)
Quarter: 2005Q2

REPORT INFORMATION
  Report Type: 
  Country: None (occurrence: None)
  Receive Date: 20050614
  Receipt Date: 20050601
  Transmission Date: 20051028
  Serious: Yes (Hospitalization)
  Sender: FDA-Public Use
  Company Number: 2005083296

PATIENT
  Sex: Female
  Weight: 49.8957 kg

DRUGS (1)
  1. DEPO-PROVERA [Suspect]
     Indication: PNEUMOTHORAX
     Dosage: 150 MG (150 MG EVERY8 WEEKS, FIRST INJECTION)
     Dates: start: 19920101, end: 19920101

REACTIONS (9)
  - ABDOMINAL DISTENSION [None]
  - COLLAPSE OF LUNG [None]
  - DISEASE RECURRENCE [None]
  - HAEMORRHAGE [None]
  - INSOMNIA [None]
  - MUSCLE SPASMS [None]
  - PNEUMOTHORAX [None]
  - VISION BLURRED [None]
  - WEIGHT INCREASED [None]
